FAERS Safety Report 4639646-4 (Version None)
Quarter: 2005Q2

REPORT INFORMATION
  Report Type: 
  Country: None (occurrence: None)
  Receive Date: 20050328
  Receipt Date: 20041216
  Transmission Date: 20051028
  Serious: No
  Sender: FDA-Public Use
  Company Number: USA041286371

PATIENT
  Age: 32 Year
  Sex: Male
  Weight: 132 kg

DRUGS (3)
  1. STRATTERA [Suspect]
     Indication: SEASONAL AFFECTIVE DISORDER
     Dosage: 40 MG DAY
     Dates: start: 20041130
  2. FLUVOXAMINE MALEATE [Concomitant]
  3. SEROQUEL [Concomitant]

REACTIONS (4)
  - DRUG INEFFECTIVE [None]
  - LIBIDO DECREASED [None]
  - POLLAKIURIA [None]
  - URINE FLOW DECREASED [None]
